FAERS Safety Report 10896886 (Version 1)
Quarter: 2015Q1

REPORT INFORMATION
  Report Type: Spontaneous
  Country: US (occurrence: US)
  Receive Date: 20150309
  Receipt Date: 20150309
  Transmission Date: 20150721
  Serious: Yes (Death)
  Sender: FDA-Public Use
  Company Number: US-BANPHARM-20153700

PATIENT
  Age: 50 Year
  Sex: Female

DRUGS (6)
  1. CITALOPRAM [Suspect]
     Active Substance: CITALOPRAM HYDROBROMIDE
  2. QUININE [Suspect]
     Active Substance: QUININE
  3. DIPHENHYDRAMINE UNKNOWN PRODUCT [Suspect]
     Active Substance: DIPHENHYDRAMINE
  4. ETHANOL [Suspect]
     Active Substance: ALCOHOL
  5. HEROIN [Suspect]
     Active Substance: DIACETYLMORPHINE
  6. BUPROPION [Suspect]
     Active Substance: BUPROPION

REACTIONS (1)
  - Drug abuse [Fatal]
